FAERS Safety Report 4735826-8 (Version None)
Quarter: 2005Q3

REPORT INFORMATION
  Report Type: 
  Country: None (occurrence: None)
  Receive Date: 20050803
  Receipt Date: 20050803
  Transmission Date: 20060218
  Serious: Yes (Hospitalization)
  Sender: FDA-Public Use
  Company Number: None

PATIENT
  Age: 73 Year
  Sex: Male
  Weight: 90.2658 kg

DRUGS (8)
  1. TOREMIFENE CITRATE [Suspect]
     Indication: BONE DISORDER
     Dosage: 40 MG TWO TABS PO QD
     Route: 048
     Dates: start: 20041105, end: 20050728
  2. TOREMIFENE CITRATE [Suspect]
     Indication: FRACTURE
     Dosage: 40 MG TWO TABS PO QD
     Route: 048
     Dates: start: 20041105, end: 20050728
  3. TOREMIFENE CITRATE [Suspect]
     Indication: PROPHYLAXIS
     Dosage: 40 MG TWO TABS PO QD
     Route: 048
     Dates: start: 20041105, end: 20050728
  4. LUPRON [Concomitant]
  5. VIT E [Concomitant]
  6. LYCOPENE [Concomitant]
  7. SELENIUM SULFIDE [Concomitant]
  8. MEGACE [Concomitant]

REACTIONS (2)
  - CHEST PAIN [None]
  - CORONARY ARTERY OCCLUSION [None]
